FAERS Safety Report 6262508-6 (Version None)
Quarter: 2009Q3

REPORT INFORMATION
  Report Type: 
  Country: None (occurrence: None)
  Receive Date: 20090709
  Receipt Date: 20090630
  Transmission Date: 20100115
  Serious: Yes (Other)
  Sender: FDA-Public Use
  Company Number: GB-SANOFI-SYNTHELABO-A01200906918

PATIENT
  Age: 64 Year
  Sex: Male

DRUGS (1)
  1. PLAVIX [Suspect]
     Indication: VASCULAR GRAFT
     Dosage: UNK
     Route: 048
     Dates: start: 20040101

REACTIONS (1)
  - NEOPLASM MALIGNANT [None]
